FAERS Safety Report 8271343-9 (Version None)
Quarter: 2012Q2

REPORT INFORMATION
  Report Type: 
  Country: None (occurrence: None)
  Receive Date: 20120410
  Receipt Date: 20120403
  Transmission Date: 20120825
  Serious: Yes (Death, Other)
  Sender: FDA-Public Use
  Company Number: US-PFIZER INC-2012028327

PATIENT
  Sex: Male
  Weight: 81.633 kg

DRUGS (2)
  1. SULFASALAZINE [Suspect]
     Indication: COLITIS ULCERATIVE
     Dosage: 500 MG, 2X/DAY
     Route: 048
  2. FOLIC ACID [Concomitant]
     Dosage: UNK

REACTIONS (4)
  - DRUG INEFFECTIVE [None]
  - DEATH [None]
  - BLOOD CHOLESTEROL INCREASED [None]
  - HYPERTENSION [None]
